FAERS Safety Report 9287792 (Version 1)
Quarter: 2013Q2

REPORT INFORMATION
  Report Type: Spontaneous
  Country: US (occurrence: US)
  Receive Date: 20130514
  Receipt Date: 20130514
  Transmission Date: 20140414
  Serious: No
  Sender: FDA-Public Use
  Company Number: US-PFIZER INC-2013145467

PATIENT
  Age: 79 Year
  Sex: Male
  Weight: 90.7 kg

DRUGS (3)
  1. NORVASC [Suspect]
     Indication: HYPERTENSION
     Dosage: 5 MG, 1X/DAY
     Route: 048
     Dates: start: 201303
  2. CRESTOR [Concomitant]
     Indication: BLOOD CHOLESTEROL INCREASED
     Dosage: UNK
  3. PROZAC [Concomitant]
     Indication: DEPRESSION
     Dosage: UNK

REACTIONS (2)
  - Local swelling [Unknown]
  - Fatigue [Unknown]
